FAERS Safety Report 9247012 (Version 2)
Quarter: 2013Q2

REPORT INFORMATION
  Report Type: Spontaneous
  Country: US (occurrence: US)
  Receive Date: 20130423
  Receipt Date: 20130428
  Transmission Date: 20140414
  Serious: No
  Sender: FDA-Public Use
  Company Number: US-009507513-1304DEU007136

PATIENT
  Age: 61 Year
  Sex: Male

DRUGS (2)
  1. MAXALT [Suspect]
     Indication: MIGRAINE
     Dosage: 10 MG, PRN; FORMULATION: ORAL DISINTEGRATING TABLET
     Route: 048
     Dates: start: 20130411, end: 20130413
  2. MAXALT [Suspect]
     Dosage: 10 MG, PRN; FORMULATION: ORAL DISINTEGRATING TABLET
     Route: 048
     Dates: start: 2010

REACTIONS (7)
  - Local swelling [Unknown]
  - Rash [Recovered/Resolved]
  - Rash [Recovered/Resolved]
  - Rash [Recovered/Resolved]
  - Swelling face [Unknown]
  - Skin lesion [Recovered/Resolved]
  - Drug ineffective [Unknown]
